FAERS Safety Report 5040989-3 (Version None)
Quarter: 2006Q2

REPORT INFORMATION
  Report Type: 
  Country: None (occurrence: None)
  Receive Date: 20060601
  Receipt Date: 20060307
  Transmission Date: 20061013
  Serious: No
  Sender: FDA-Public Use
  Company Number: 2006PV009823

PATIENT
  Age: 88 Year
  Sex: Female

DRUGS (5)
  1. BYETTA [Suspect]
     Indication: DIABETES MELLITUS NON-INSULIN-DEPENDENT
     Dosage: 5 MCG;BID;SC
     Route: 058
     Dates: start: 20060228
  2. STARLIX [Concomitant]
  3. AVANDIA [Concomitant]
  4. ATENOL [Concomitant]
  5. PLAVIX [Concomitant]

REACTIONS (7)
  - ASTHENIA [None]
  - CONSTIPATION [None]
  - FEELING JITTERY [None]
  - MUSCULAR WEAKNESS [None]
  - NAUSEA [None]
  - NERVOUSNESS [None]
  - TREMOR [None]
